FAERS Safety Report 10361215 (Version 1)
Quarter: 2014Q3

REPORT INFORMATION
  Report Type: Spontaneous
  Country: US (occurrence: None)
  Receive Date: 20140731
  Receipt Date: 20140731
  Transmission Date: 20150326
  Serious: Yes (Other)
  Sender: FDA-Public Use
  Company Number: 2014AP003727

PATIENT
  Age: 51 Year
  Sex: Female
  Weight: 47 kg

DRUGS (3)
  1. ATIVAN [Concomitant]
     Active Substance: LORAZEPAM
  2. SERTRALINE [Suspect]
     Active Substance: SERTRALINE HYDROCHLORIDE
     Indication: DEPRESSION
     Dates: start: 2004, end: 20140530
  3. ADVAIR DISKUS [Concomitant]
     Active Substance: FLUTICASONE PROPIONATE\SALMETEROL XINAFOATE

REACTIONS (12)
  - Road traffic accident [None]
  - Drug intolerance [None]
  - Impaired driving ability [None]
  - Insomnia [None]
  - Feeling abnormal [None]
  - Dizziness [None]
  - Disturbance in attention [None]
  - Drug ineffective [None]
  - Aphagia [None]
  - Malaise [None]
  - Pain [None]
  - Therapy change [None]

NARRATIVE: CASE EVENT DATE: 201405
